FAERS Safety Report 19279158 (Version 3)
Quarter: 2023Q1

REPORT INFORMATION
  Report Type: Report from Study
  Country: DE (occurrence: None)
  Receive Date: 20210520
  Receipt Date: 20230214
  Transmission Date: 20230417
  Serious: Yes (Hospitalization)
  Sender: FDA-Public Use
  Company Number: DE-ROCHE-2831292

PATIENT
  Age: 51 Year
  Sex: Male
  Weight: 102 kg

DRUGS (2)
  1. COBIMETINIB [Suspect]
     Active Substance: COBIMETINIB
     Indication: Metastatic malignant melanoma
     Dosage: DATE OF MOST RECENT DOSE OF COBIMETINIB PRIOR TO ADVERSE EVENT ONSET: 06/MAY/2021
     Route: 048
     Dates: start: 20201228
  2. VEMURAFENIB [Suspect]
     Active Substance: VEMURAFENIB
     Indication: Metastatic malignant melanoma
     Dosage: DATE OF MOST RECENT DOSE OF VEMURAFENIB PRIOR TO ADVERSE EVENT ONSET: 06/MAY/2021
     Route: 048
     Dates: start: 20201228

REACTIONS (1)
  - Metastases to central nervous system [Recovered/Resolved]

NARRATIVE: CASE EVENT DATE: 20210226
